FAERS Safety Report 19872626 (Version 1)
Quarter: 2021Q3

REPORT INFORMATION
  Report Type: Spontaneous
  Country: IE (occurrence: IE)
  Receive Date: 20210922
  Receipt Date: 20210922
  Transmission Date: 20211014
  Serious: Yes (Other)
  Sender: FDA-Public Use
  Company Number: IE-ANIPHARMA-2021-IE-000035

PATIENT
  Age: 83 Year
  Sex: Female

DRUGS (4)
  1. BURINEX [Concomitant]
     Active Substance: BUMETANIDE
     Dosage: 1 MG QD
     Route: 065
  2. CANDESARTAN CILEXETIL. [Suspect]
     Active Substance: CANDESARTAN CILEXETIL
     Indication: HYPERTENSION
     Dosage: 4 MG QD
     Route: 048
     Dates: start: 20210623, end: 20210726
  3. BUTRANS [Concomitant]
     Active Substance: BUPRENORPHINE
     Dosage: 10 MG WEEK
     Route: 065
  4. ASPIRIN. [Concomitant]
     Active Substance: ASPIRIN
     Dosage: 75 MG QD
     Route: 065

REACTIONS (1)
  - Dyspnoea [Recovered/Resolved]
